FAERS Safety Report 15480095 (Version 2)
Quarter: 2018Q4

REPORT INFORMATION
  Report Type: Report from Study
  Country: BR (occurrence: BR)
  Receive Date: 20181009
  Receipt Date: 20181107
  Transmission Date: 20190205
  Serious: Yes (Other)
  Sender: FDA-Public Use
  Company Number: PHHY2018BR116389

PATIENT
  Sex: Female
  Weight: 89 kg

DRUGS (3)
  1. GALVUS MET [Suspect]
     Active Substance: METFORMIN HYDROCHLORIDE\VILDAGLIPTIN
     Indication: DIABETES MELLITUS
     Dosage: 1 DF, BID (METFORMIN 850 MG, VILDAGLIPTIN 50 MG)
     Route: 048
  2. DIOVAN [Suspect]
     Active Substance: VALSARTAN
     Indication: HYPERTENSION
     Dosage: 1 DF, QD
     Route: 048
  3. LANTUS [Concomitant]
     Active Substance: INSULIN GLARGINE
     Indication: DIABETES MELLITUS
     Dosage: UNK (STARTED 2 YEARS AGO AND 1 YEAR AGO STOPPED USING INSULIN DUE TO PRICE)
     Route: 065

REACTIONS (8)
  - Diabetic eye disease [Not Recovered/Not Resolved]
  - Cataract [Recovering/Resolving]
  - Pain in extremity [Recovering/Resolving]
  - Retinal haemorrhage [Unknown]
  - Gait disturbance [Not Recovered/Not Resolved]
  - Blindness unilateral [Not Recovered/Not Resolved]
  - Visual impairment [Not Recovered/Not Resolved]
  - General physical health deterioration [Unknown]
